FAERS Safety Report 5191330-7 (Version None)
Quarter: 2006Q4

REPORT INFORMATION
  Report Type: 
  Country: None (occurrence: None)
  Receive Date: 20061219
  Receipt Date: 20061213
  Transmission Date: 20070319
  Serious: Yes (Hospitalization)
  Sender: FDA-Public Use
  Company Number: HQWYE198115DEC06

PATIENT
  Age: 4 Year
  Sex: Male

DRUGS (1)
  1. CEFIXIME CHEWABLE [Suspect]
     Indication: EAR INFECTION
     Dosage: ORAL
     Route: 048
     Dates: start: 20061122, end: 20061123

REACTIONS (3)
  - ARTHRALGIA [None]
  - HENOCH-SCHONLEIN PURPURA [None]
  - HYPERTHERMIA [None]
